FAERS Safety Report 22341087 (Version 1)
Quarter: 2023Q2

REPORT INFORMATION
  Report Type: Spontaneous
  Country: CN (occurrence: CN)
  Receive Date: 20230518
  Receipt Date: 20230518
  Transmission Date: 20230722
  Serious: Yes (Hospitalization)
  Sender: FDA-Public Use
  Company Number: CN-PFIZER INC-PV202300085003

PATIENT
  Sex: Male
  Weight: 65 kg

DRUGS (2)
  1. AVIBACTAM SODIUM\CEFTAZIDIME [Suspect]
     Active Substance: AVIBACTAM SODIUM\CEFTAZIDIME
     Indication: Therapeutic procedure
     Dosage: 2.5 G, 3X/DAY
     Route: 041
     Dates: start: 20230425, end: 20230505
  2. SODIUM CHLORIDE [Concomitant]
     Active Substance: SODIUM CHLORIDE
     Indication: Vehicle solution use
     Dosage: 100 ML, 3X/DAY
     Route: 041
     Dates: start: 20230425, end: 20230505

REACTIONS (2)
  - Liver injury [Unknown]
  - Jaundice [Unknown]

NARRATIVE: CASE EVENT DATE: 20230428
